FAERS Safety Report 10208497 (Version 1)
Quarter: 2014Q2

REPORT INFORMATION
  Report Type: Report from Study
  Country: JP (occurrence: JP)
  Receive Date: 20140530
  Receipt Date: 20140530
  Transmission Date: 20141212
  Serious: Yes (Hospitalization)
  Sender: FDA-Public Use
  Company Number: JP-GLAXOSMITHKLINE-B0985219A

PATIENT
  Age: 43 Year
  Sex: Female

DRUGS (8)
  1. LAMICTAL [Suspect]
     Indication: BIPOLAR II DISORDER
     Dosage: 25MG PER DAY
     Route: 048
     Dates: start: 20121105, end: 20121122
  2. ETHYL LOFLAZEPATE [Concomitant]
     Indication: MAJOR DEPRESSION
     Route: 048
  3. DALMATE [Concomitant]
     Indication: MAJOR DEPRESSION
     Route: 048
  4. HALRACK [Concomitant]
     Indication: MAJOR DEPRESSION
     Route: 048
  5. ZYPREXA [Concomitant]
     Indication: MAJOR DEPRESSION
     Route: 048
  6. ETISEDAN [Concomitant]
     Indication: MAJOR DEPRESSION
     Route: 048
  7. FAMOTIDINE [Concomitant]
     Dosage: 10MG TWICE PER DAY
     Route: 048
  8. SENNOSIDE [Concomitant]
     Dosage: 12MG PER DAY
     Route: 048

REACTIONS (4)
  - Pyrexia [Recovered/Resolved]
  - Rash [Recovered/Resolved]
  - Rash [Recovered/Resolved]
  - Conjunctival hyperaemia [Recovered/Resolved]
